FAERS Safety Report 6676845-4 (Version None)
Quarter: 2010Q2

REPORT INFORMATION
  Report Type: 
  Country: None (occurrence: None)
  Receive Date: 20100408
  Receipt Date: 20100408
  Transmission Date: 20101027
  Serious: Yes (Other)
  Sender: FDA-Public Use
  Company Number: None

PATIENT
  Sex: Male
  Weight: 109.1 kg

DRUGS (2)
  1. DICLOXACILLIN 500MG SANDO [Suspect]
     Indication: SINUSITIS
     Dosage: DICLOXACILLIN CAP 500MG 1 CAP. 2 X DAILY 047
     Dates: start: 20100327, end: 20100329
  2. CARBOFED DM HIT [Suspect]
     Indication: SINUSITIS
     Dosage: CARBOFED DM 1 T 4X A DAY 047
     Dates: start: 20100327, end: 20100329

REACTIONS (9)
  - ABDOMINAL PAIN UPPER [None]
  - ASTHENIA [None]
  - DIARRHOEA [None]
  - FATIGUE [None]
  - HEADACHE [None]
  - ILL-DEFINED DISORDER [None]
  - MALAISE [None]
  - PAIN [None]
  - VOMITING [None]
